FAERS Safety Report 17425420 (Version 2)
Quarter: 2020Q1

REPORT INFORMATION
  Report Type: Report from Study
  Country: US (occurrence: US)
  Receive Date: 20200218
  Receipt Date: 20200317
  Transmission Date: 20200409
  Serious: No
  Sender: FDA-Public Use
  Company Number: NVSC2019US047629

PATIENT
  Sex: Male

DRUGS (2)
  1. COSENTYX [Suspect]
     Active Substance: SECUKINUMAB
     Indication: PSORIASIS
  2. COSENTYX [Suspect]
     Active Substance: SECUKINUMAB
     Indication: PSORIASIS
     Dosage: 300 MG, QW (300 MG, QW FOR 5 WEEKS THEN 300 MG Q4W)
     Route: 058
     Dates: start: 20190803

REACTIONS (5)
  - Psoriasis [Unknown]
  - Pain in extremity [Recovering/Resolving]
  - Product dose omission [Unknown]
  - Arthralgia [Recovering/Resolving]
  - Influenza [Recovered/Resolved]
